FAERS Safety Report 6965703-3 (Version None)
Quarter: 2010Q3

REPORT INFORMATION
  Report Type: 
  Country: None (occurrence: None)
  Receive Date: 20100823
  Receipt Date: 20100430
  Transmission Date: 20110219
  Serious: No
  Sender: FDA-Public Use
  Company Number: 011291

PATIENT
  Sex: Male
  Weight: 86.3 kg

DRUGS (2)
  1. CIMZIA [Suspect]
     Indication: COLITIS
     Dosage: (SUBCUTANEOUS)
     Route: 058
     Dates: start: 20100222, end: 20100322
  2. HYPERCODONE [Concomitant]

REACTIONS (10)
  - ABDOMINAL PAIN [None]
  - ARTHRALGIA [None]
  - ASTHENIA [None]
  - DECREASED APPETITE [None]
  - DIARRHOEA [None]
  - HYPOAESTHESIA [None]
  - OROPHARYNGEAL PAIN [None]
  - PYREXIA [None]
  - RASH [None]
  - VISION BLURRED [None]
